FAERS Safety Report 17402162 (Version 6)
Quarter: 2020Q4

REPORT INFORMATION
  Report Type: Spontaneous
  Country: US (occurrence: US)
  Receive Date: 20200211
  Receipt Date: 20201001
  Transmission Date: 20210113
  Serious: Yes (Other)
  Sender: FDA-Public Use
  Company Number: US-PFIZER INC-2020058707

PATIENT
  Age: 69 Year
  Sex: Female

DRUGS (1)
  1. XELJANZ XR [Suspect]
     Active Substance: TOFACITINIB CITRATE
     Dosage: 11 MG, UNK
     Dates: start: 20191015

REACTIONS (15)
  - Suspected COVID-19 [Unknown]
  - Illness [Unknown]
  - Fatigue [Unknown]
  - Pain in extremity [Unknown]
  - Upper respiratory tract infection [Unknown]
  - Pain [Unknown]
  - Condition aggravated [Unknown]
  - Cataract [Unknown]
  - Arthralgia [Not Recovered/Not Resolved]
  - Middle insomnia [Unknown]
  - Pyrexia [Unknown]
  - Memory impairment [Unknown]
  - Abdominal pain upper [Unknown]
  - Abdominal distension [Unknown]
  - Product dose omission in error [Unknown]

NARRATIVE: CASE EVENT DATE: 202001
